FAERS Safety Report 4911697-1 (Version None)
Quarter: 2006Q1

REPORT INFORMATION
  Report Type: 
  Country: None (occurrence: None)
  Receive Date: 20060213
  Receipt Date: 20060131
  Transmission Date: 20060701
  Serious: Yes (Other)
  Sender: FDA-Public Use
  Company Number: 2006017405

PATIENT
  Sex: Female

DRUGS (3)
  1. PROCARDIA [Suspect]
     Indication: ILL-DEFINED DISORDER
     Dates: start: 19910101
  2. PREMARIN [Suspect]
     Indication: ILL-DEFINED DISORDER
  3. LOTENSIN [Suspect]
     Indication: ILL-DEFINED DISORDER

REACTIONS (3)
  - BREAST CANCER FEMALE [None]
  - COUGH [None]
  - OESTROGEN RECEPTOR ASSAY POSITIVE [None]
